FAERS Safety Report 4672937-X (Version None)
Quarter: 2005Q2

REPORT INFORMATION
  Report Type: 
  Country: None (occurrence: None)
  Receive Date: 20050523
  Receipt Date: 20050509
  Transmission Date: 20051028
  Serious: Yes (Death, Hospitalization)
  Sender: FDA-Public Use
  Company Number: 0500059EN0020P

PATIENT
  Age: 4 Year
  Sex: Female
  Weight: 14 kg

DRUGS (5)
  1. ONCASPAR [Suspect]
     Indication: ACUTE LYMPHOCYTIC LEUKAEMIA
     Dosage: 1575 IU IM
     Route: 030
     Dates: start: 20030929, end: 20030929
  2. VINCRISTINE [Suspect]
     Indication: ACUTE LYMPHOCYTIC LEUKAEMIA
     Dosage: 0.95-0.92 MG Q7DAY
     Dates: start: 20030925, end: 20031009
  3. DEXAMETHASONE [Suspect]
     Indication: ACUTE LYMPHOCYTIC LEUKAEMIA
     Dosage: 3.8 MG QD
     Dates: start: 20030925, end: 20031009
  4. CYTARABINE [Suspect]
     Indication: ACUTE LYMPHOCYTIC LEUKAEMIA
     Dosage: 70 MG IT
     Route: 038
     Dates: start: 20030925, end: 20030925
  5. METHOTREXATE [Suspect]
     Indication: ACUTE LYMPHOCYTIC LEUKAEMIA
     Dosage: 12 MG IT Q7DAYS
     Route: 038
     Dates: start: 20031002, end: 20031002

REACTIONS (7)
  - BACTERIAL INFECTION [None]
  - BLOOD CULTURE POSITIVE [None]
  - CAECITIS [None]
  - CLOSTRIDIAL INFECTION [None]
  - ENTEROCOLITIS HAEMORRHAGIC [None]
  - NEUTROPENIA [None]
  - SEPSIS [None]
